FAERS Safety Report 18333697 (Version 3)
Quarter: 2020Q4

REPORT INFORMATION
  Report Type: Spontaneous
  Country: ES (occurrence: ES)
  Receive Date: 20201001
  Receipt Date: 20201012
  Transmission Date: 20210113
  Serious: Yes (Life-Threatening, Hospitalization, Other)
  Sender: FDA-Public Use
  Company Number: ES-PFIZER INC-2020378182

PATIENT
  Age: 50 Year
  Sex: Male

DRUGS (10)
  1. SOFOSBUVIR [Concomitant]
     Active Substance: SOFOSBUVIR
     Indication: CHRONIC HEPATITIS
     Dosage: UNK
     Dates: start: 201506, end: 201509
  2. ALEMTUZUMAB [Suspect]
     Active Substance: ALEMTUZUMAB
     Indication: IMMUNOSUPPRESSANT DRUG THERAPY
     Dosage: UNK
     Dates: start: 201111
  3. TACROLIMUS. [Suspect]
     Active Substance: TACROLIMUS
     Indication: IMMUNOSUPPRESSANT DRUG THERAPY
     Dosage: UNK
     Dates: start: 2011
  4. RIBAVIRINE [Concomitant]
     Active Substance: RIBAVIRIN
     Indication: CHRONIC HEPATITIS
     Dosage: UNK
     Dates: start: 201506, end: 201509
  5. RABBIT ANTI HUMAN THYMOCYTE IMMUNOGLOBULIN [Suspect]
     Active Substance: LAPINE T-LYMPHOCYTE IMMUNE GLOBULIN
     Indication: TRANSPLANT REJECTION
     Dosage: UNK
     Dates: start: 201606
  6. METHYLPREDNISOLONE. [Suspect]
     Active Substance: METHYLPREDNISOLONE
     Indication: TRANSPLANT REJECTION
     Dosage: 1 DF, SINGLE BOLUS
     Dates: start: 201111, end: 201111
  7. METHYLPREDNISOLONE. [Suspect]
     Active Substance: METHYLPREDNISOLONE
     Indication: IMMUNOSUPPRESSANT DRUG THERAPY
     Dosage: 1 G, 1X/DAY BOLUS
     Dates: start: 201606
  8. TACROLIMUS. [Suspect]
     Active Substance: TACROLIMUS
     Dosage: UNK (AT 70% OF THE DOSE)
  9. BASILIXIMAB [Suspect]
     Active Substance: BASILIXIMAB
     Indication: TRANSPLANT REJECTION
     Dosage: UNK
     Dates: start: 201606
  10. LEDIPASVIR [Concomitant]
     Active Substance: LEDIPASVIR
     Indication: CHRONIC HEPATITIS C
     Dosage: UNK
     Dates: start: 201506, end: 201509

REACTIONS (3)
  - Bronchopulmonary aspergillosis [Unknown]
  - Cerebral aspergillosis [Unknown]
  - Cytomegalovirus enteritis [Recovered/Resolved]

NARRATIVE: CASE EVENT DATE: 2016
